FAERS Safety Report 11962389 (Version 1)
Quarter: 2016Q1

REPORT INFORMATION
  Report Type: Spontaneous
  Country: US (occurrence: US)
  Receive Date: 20160126
  Receipt Date: 20160126
  Transmission Date: 20160526
  Serious: Yes (Hospitalization, Other)
  Sender: FDA-Public Use
  Company Number: US-ACTAVIS-2016-01246

PATIENT
  Age: 64 Year
  Sex: Female

DRUGS (2)
  1. QUINIDINE (WATSON LABORATORIES) [Suspect]
     Active Substance: QUINIDINE
     Indication: VENTRICULAR ARRHYTHMIA
     Dosage: UNK, TID
     Route: 065
  2. DIGOXIN. [Concomitant]
     Active Substance: DIGOXIN
     Indication: PRODUCT USED FOR UNKNOWN INDICATION
     Dosage: UNK
     Route: 065

REACTIONS (2)
  - Lupus-like syndrome [Recovering/Resolving]
  - Nephrotic syndrome [Recovered/Resolved]
